FAERS Safety Report 7279197-4 (Version None)
Quarter: 2011Q1

REPORT INFORMATION
  Report Type: 
  Country: None (occurrence: None)
  Receive Date: 20110207
  Receipt Date: 20110125
  Transmission Date: 20110831
  Serious: Yes (Other)
  Sender: FDA-Public Use
  Company Number: GB-MYLANLABS-2010S1021327

PATIENT
  Age: 49 Year
  Sex: Male
  Weight: 106 kg

DRUGS (7)
  1. RAMIPRIL [Concomitant]
     Indication: HYPERTENSION
     Route: 048
     Dates: start: 20021119
  2. METFORMIN HCL [Concomitant]
     Indication: PRODUCT USED FOR UNKNOWN INDICATION
     Route: 048
     Dates: start: 19970129
  3. DOXAZOSIN MESYLATE [Suspect]
     Dates: start: 20100922
  4. DOXAZOSIN MESYLATE [Suspect]
     Indication: HYPERTENSION
     Route: 048
     Dates: start: 20100816, end: 20100901
  5. HUMALOG [Concomitant]
     Indication: DIABETES MELLITUS
     Route: 058
     Dates: start: 20000510
  6. ADIZEM-XL [Concomitant]
     Indication: HYPERTENSION
     Route: 048
     Dates: start: 20021114
  7. ATORVASTATIN [Concomitant]
     Indication: MIXED HYPERLIPIDAEMIA
     Route: 048
     Dates: start: 20051014

REACTIONS (6)
  - NECK PAIN [None]
  - LETHARGY [None]
  - MUSCULOSKELETAL STIFFNESS [None]
  - AURA [None]
  - FACE OEDEMA [None]
  - TUNNEL VISION [None]
